FAERS Safety Report 19662328 (Version 2)
Quarter: 2021Q3

REPORT INFORMATION
  Report Type: Spontaneous
  Country: JP (occurrence: JP)
  Receive Date: 20210805
  Receipt Date: 20210921
  Transmission Date: 20211014
  Serious: Yes (Death, Life-Threatening, Congenital Anomaly)
  Sender: FDA-Public Use
  Company Number: JP-JNJFOC-20210800315

PATIENT
  Age: 48 Year
  Sex: Male
  Weight: 46 kg

DRUGS (1)
  1. OPSUMIT [Suspect]
     Active Substance: MACITENTAN
     Indication: PRODUCT USED FOR UNKNOWN INDICATION
     Dosage: DOSE UNKNOWN
     Route: 048

REACTIONS (1)
  - Right-to-left cardiac shunt [Fatal]

NARRATIVE: CASE EVENT DATE: 20210725
